FAERS Safety Report 9752491 (Version 1)
Quarter: 2013Q4

REPORT INFORMATION
  Report Type: Spontaneous
  Country: US (occurrence: US)
  Receive Date: 20131213
  Receipt Date: 20131213
  Transmission Date: 20140711
  Serious: Yes (Hospitalization)
  Sender: FDA-Public Use
  Company Number: US-ROXANE LABORATORIES, INC.-2013-RO-01934RO

PATIENT
  Sex: Female

DRUGS (2)
  1. FLECAINIDE [Suspect]
     Indication: ATRIAL FIBRILLATION
     Dosage: 300 MG
     Route: 048
     Dates: start: 20130709, end: 20130713
  2. FLECAINIDE [Suspect]
     Dosage: 300 MG
     Route: 048
     Dates: start: 20131029, end: 20131125

REACTIONS (7)
  - Dyspnoea [Unknown]
  - Vision blurred [Not Recovered/Not Resolved]
  - Dizziness [Not Recovered/Not Resolved]
  - Palpitations [Unknown]
  - Dizziness [Not Recovered/Not Resolved]
  - Headache [Unknown]
  - Pulmonary congestion [Unknown]
